FAERS Safety Report 16564106 (Version 1)
Quarter: 2019Q3

REPORT INFORMATION
  Report Type: Spontaneous
  Country: AU (occurrence: AU)
  Receive Date: 20190712
  Receipt Date: 20190712
  Transmission Date: 20191004
  Serious: Yes (Hospitalization, Other)
  Sender: FDA-Public Use
  Company Number: AU-ALEXION PHARMACEUTICALS INC.-A201906050

PATIENT
  Age: 46 Year
  Sex: Male

DRUGS (1)
  1. SOLIRIS [Suspect]
     Active Substance: ECULIZUMAB
     Indication: ATYPICAL HAEMOLYTIC URAEMIC SYNDROME
     Route: 065

REACTIONS (5)
  - Malnutrition [Unknown]
  - Cardiomyopathy [Unknown]
  - Drug ineffective [Unknown]
  - Urine output decreased [Unknown]
  - Duodenal ulcer perforation [Unknown]
